FAERS Safety Report 21891241 (Version 2)
Quarter: 2023Q1

REPORT INFORMATION
  Report Type: Other
  Country: IN (occurrence: IN)
  Receive Date: 20230120
  Receipt Date: 20230131
  Transmission Date: 20230418
  Serious: Yes (Hospitalization)
  Sender: FDA-Public Use
  Company Number: IN-ALVOGEN-2023088977

PATIENT
  Age: 16 Year
  Sex: Female

DRUGS (1)
  1. DAPSONE [Suspect]
     Active Substance: DAPSONE
     Indication: Suicide attempt
     Dosage: 15 TABLETS

REACTIONS (4)
  - Suicide attempt [Unknown]
  - Haemolytic anaemia [Unknown]
  - Methaemoglobinaemia [Recovered/Resolved]
  - Intentional product misuse [Unknown]
